FAERS Safety Report 7945891-2 (Version None)
Quarter: 2011Q4

REPORT INFORMATION
  Report Type: 
  Country: None (occurrence: None)
  Receive Date: 20111129
  Receipt Date: 20111117
  Transmission Date: 20120403
  Serious: Yes (Death, Hospitalization)
  Sender: FDA-Public Use
  Company Number: CA-NOVOPROD-339818

PATIENT

DRUGS (4)
  1. DABIGATRAN [Concomitant]
     Dosage: 75 MG, BID
  2. NIASTASE [Suspect]
     Dosage: 5 MG, QD
     Route: 065
     Dates: start: 20110918
  3. DIGOXIN [Concomitant]
     Dosage: 0.0625 MG, QD
  4. INSULIN [Concomitant]

REACTIONS (2)
  - ACUTE MYOCARDIAL INFARCTION [None]
  - SUDDEN CARDIAC DEATH [None]
